FAERS Safety Report 5406178-5 (Version None)
Quarter: 2007Q3

REPORT INFORMATION
  Report Type: 
  Country: None (occurrence: None)
  Receive Date: 20070806
  Receipt Date: 20070801
  Transmission Date: 20080115
  Serious: Yes (Life-Threatening)
  Sender: FDA-Public Use
  Company Number: JP-ASTRAZENECA-2007AP03538

PATIENT
  Age: 19644 Day
  Sex: Female
  Weight: 42.8 kg

DRUGS (4)
  1. ARIMIDEX [Suspect]
     Indication: BREAST CANCER
     Route: 048
     Dates: start: 20070127, end: 20070601
  2. FAMOTIDINE [Concomitant]
     Indication: GASTRITIS
     Dates: start: 20070404, end: 20070411
  3. SM POWDER [Concomitant]
     Indication: GASTRITIS
     Route: 048
     Dates: start: 20070404, end: 20070411
  4. RADIOTHERAPY [Concomitant]
     Dates: start: 20070222, end: 20070406

REACTIONS (1)
  - PANCYTOPENIA [None]
